FAERS Safety Report 4364402-4 (Version None)
Quarter: 2004Q2

REPORT INFORMATION
  Report Type: 
  Country: None (occurrence: None)
  Receive Date: 20040525
  Receipt Date: 20040305
  Transmission Date: 20050107
  Serious: Yes (Hospitalization)
  Sender: FDA-Public Use
  Company Number: FR-ROCHE-361097

PATIENT
  Age: 39 Year
  Sex: Male
  Weight: 53 kg

DRUGS (7)
  1. FUZEON [Suspect]
     Indication: HIV INFECTION
     Route: 058
     Dates: start: 20040301, end: 20040302
  2. FUZEON [Suspect]
     Route: 058
     Dates: start: 20040218, end: 20040229
  3. ZIAGEN [Concomitant]
     Indication: HIV INFECTION
     Route: 048
     Dates: start: 20040218, end: 20040423
  4. NORVIR [Concomitant]
     Indication: HIV INFECTION
     Route: 048
     Dates: start: 20040218, end: 20040423
  5. AGENERASE [Concomitant]
     Indication: HIV INFECTION
     Route: 048
     Dates: start: 20040218
  6. NEURONTIN [Concomitant]
     Indication: EPILEPSY
     Route: 048
  7. GARDENAL [Concomitant]
     Indication: EPILEPSY
     Route: 048

REACTIONS (7)
  - C-REACTIVE PROTEIN INCREASED [None]
  - ERYTHEMA [None]
  - OEDEMA [None]
  - PYREXIA [None]
  - RASH GENERALISED [None]
  - RASH MACULO-PAPULAR [None]
  - RASH PRURITIC [None]
